FAERS Safety Report 16913917 (Version 3)
Quarter: 2020Q1

REPORT INFORMATION
  Report Type: Spontaneous
  Country: US (occurrence: US)
  Receive Date: 20191014
  Receipt Date: 20200213
  Transmission Date: 20200409
  Serious: No
  Sender: FDA-Public Use
  Company Number: US-PFIZER INC-2019440831

PATIENT
  Age: 77 Year
  Sex: Female

DRUGS (1)
  1. ENALAPRILAT. [Suspect]
     Active Substance: ENALAPRILAT
     Dosage: UNK
     Dates: start: 20021219

REACTIONS (1)
  - Drug hypersensitivity [Unknown]
